FAERS Safety Report 7093849-0 (Version None)
Quarter: 2010Q4

REPORT INFORMATION
  Report Type: 
  Country: None (occurrence: None)
  Receive Date: 20101110
  Receipt Date: 20101103
  Transmission Date: 20110411
  Serious: Yes (Congenital Anomaly)
  Sender: FDA-Public Use
  Company Number: A0890557B

PATIENT
  Sex: Female

DRUGS (3)
  1. ADVAIR DISKUS 100/50 [Suspect]
     Indication: ASTHMA
     Dosage: 1PUFF TWICE PER DAY
     Dates: start: 20000101, end: 20040701
  2. PROVENTIL [Concomitant]
  3. PRENATAL VITAMINS [Concomitant]

REACTIONS (9)
  - BONE DISORDER [None]
  - CARDIAC MURMUR [None]
  - CONNECTIVE TISSUE DISORDER [None]
  - DRUG EXPOSURE DURING PREGNANCY [None]
  - JOINT RANGE OF MOTION DECREASED [None]
  - MENTAL RETARDATION [None]
  - OPTIC NERVE DISORDER [None]
  - SPEECH DISORDER DEVELOPMENTAL [None]
  - TALIPES [None]
